FAERS Safety Report 7226757-2 (Version None)
Quarter: 2011Q1

REPORT INFORMATION
  Report Type: 
  Country: None (occurrence: None)
  Receive Date: 20110114
  Receipt Date: 20110105
  Transmission Date: 20110831
  Serious: Yes (Life-Threatening, Hospitalization)
  Sender: FDA-Public Use
  Company Number: JP-JNJFOC-20101103575

PATIENT
  Sex: Male

DRUGS (1)
  1. FINIBAX [Suspect]
     Indication: PLEURISY
     Route: 041

REACTIONS (2)
  - RENAL FAILURE [None]
  - OFF LABEL USE [None]
